FAERS Safety Report 25191876 (Version 1)
Quarter: 2025Q2

REPORT INFORMATION
  Report Type: Spontaneous
  Country: US (occurrence: US)
  Receive Date: 20250414
  Receipt Date: 20250414
  Transmission Date: 20250717
  Serious: No
  Sender: AMGEN
  Company Number: US-AMGEN-USASP2025071744

PATIENT
  Age: 60 Year
  Sex: Male

DRUGS (12)
  1. OTEZLA [Suspect]
     Active Substance: APREMILAST
     Indication: Psoriatic arthropathy
     Route: 048
     Dates: start: 20250304
  2. OTEZLA [Suspect]
     Active Substance: APREMILAST
     Route: 048
  3. OTEZLA [Suspect]
     Active Substance: APREMILAST
     Route: 048
  4. ENBREL [Suspect]
     Active Substance: ETANERCEPT
     Indication: Product used for unknown indication
     Route: 065
  5. CALCIPOTRIENE [Concomitant]
     Active Substance: CALCIPOTRIENE
  6. CELECOXIB [Concomitant]
     Active Substance: CELECOXIB
  7. HALOBETASOL [Concomitant]
     Active Substance: HALOBETASOL
  8. LEFLUNOMIDE [Concomitant]
     Active Substance: LEFLUNOMIDE
  9. METHOTREXATE [Concomitant]
     Active Substance: METHOTREXATE
  10. VITAMINS [Concomitant]
     Active Substance: VITAMINS
  11. TESTOSTERONE [Concomitant]
     Active Substance: TESTOSTERONE
  12. VARENICLINE [Concomitant]
     Active Substance: VARENICLINE

REACTIONS (1)
  - Pain [Not Recovered/Not Resolved]

NARRATIVE: CASE EVENT DATE: 20250301
